FAERS Safety Report 9123249 (Version 3)
Quarter: 2013Q2

REPORT INFORMATION
  Report Type: Spontaneous
  Country: US (occurrence: US)
  Receive Date: 20130227
  Receipt Date: 20130425
  Transmission Date: 20140414
  Serious: Yes (Hospitalization)
  Sender: FDA-Public Use
  Company Number: US-BAYER-2013-025061

PATIENT
  Age: 26 Year
  Sex: Female
  Weight: 61.22 kg

DRUGS (12)
  1. YASMIN [Suspect]
     Indication: CONTRACEPTION
     Dosage: UNK
     Dates: start: 2004, end: 2011
  2. HYDROCODONE W/ACETAMINOPHEN [Concomitant]
     Dosage: UNK
     Dates: start: 20110116
  3. NAPROXEN [Concomitant]
     Dosage: 500 MG, TID
     Dates: start: 20100117, end: 201301
  4. BUPIVACAINE W/EPINEPHRINE [Concomitant]
     Dosage: UNK
     Dates: start: 20110116
  5. ONDANSETRON [Concomitant]
     Dosage: UNK
     Dates: start: 20110116
  6. EPHEDRINE [Concomitant]
     Dosage: UNK
     Dates: start: 20110116
  7. FENTANYL [Concomitant]
     Dosage: UNK
     Dates: start: 20110116
  8. BENADRYL [Concomitant]
     Dosage: UNK
     Dates: start: 20110116
  9. CEFAZOLIN [Concomitant]
     Dosage: UNK
     Dates: start: 20110116
  10. KEFZOL [Concomitant]
     Dosage: 1 G, UNK
     Route: 042
  11. DILAUDID [Concomitant]
  12. PERCOCET [Concomitant]

REACTIONS (2)
  - Deep vein thrombosis [None]
  - Local swelling [None]
